FAERS Safety Report 16904869 (Version 1)
Quarter: 2019Q4

REPORT INFORMATION
  Report Type: Spontaneous
  Country: US (occurrence: US)
  Receive Date: 20191010
  Receipt Date: 20191010
  Transmission Date: 20200122
  Serious: No
  Sender: FDA-Public Use
  Company Number: US-BAUSCH-BL-2019-026149

PATIENT
  Age: 76 Year
  Sex: Male
  Weight: 83.99 kg

DRUGS (3)
  1. EFUDEX [Suspect]
     Active Substance: FLUOROURACIL
     Indication: PRECANCEROUS SKIN LESION
     Dosage: STARTED ABOUT 4 WEEKS AGO
     Route: 061
     Dates: start: 2019, end: 2019
  2. PLAVIX [Concomitant]
     Active Substance: CLOPIDOGREL BISULFATE
     Indication: PRODUCT USED FOR UNKNOWN INDICATION
     Route: 048
  3. EFUDEX [Suspect]
     Active Substance: FLUOROURACIL
     Dosage: AFTER STOPPING FOR 1 WEEK, RESTARTED
     Route: 061
     Dates: start: 2019

REACTIONS (5)
  - Application site erythema [Not Recovered/Not Resolved]
  - Application site papules [Not Recovered/Not Resolved]
  - Incorrect dose administered [Unknown]
  - Application site pruritus [Not Recovered/Not Resolved]
  - Application site pain [Not Recovered/Not Resolved]

NARRATIVE: CASE EVENT DATE: 2019
